FAERS Safety Report 4616951-9 (Version None)
Quarter: 2005Q1

REPORT INFORMATION
  Report Type: 
  Country: None (occurrence: None)
  Receive Date: 20050321
  Receipt Date: 20050318
  Transmission Date: 20050727
  Serious: Yes (Death)
  Sender: FDA-Public Use
  Company Number: J081-002-001898

PATIENT
  Age: 81 Year
  Sex: Male

DRUGS (8)
  1. ARICEPT [Suspect]
     Indication: DEMENTIA ALZHEIMER'S TYPE
     Dosage: SEE IMAGE, ORAL
     Route: 048
     Dates: start: 20050106, end: 20050119
  2. ARICEPT [Suspect]
     Indication: DEMENTIA ALZHEIMER'S TYPE
     Dosage: SEE IMAGE, ORAL
     Route: 048
     Dates: start: 20050120
  3. CEROCRAL (IFENPRODIL TARTRATE) [Concomitant]
  4. KETAS (IBUDILAST) [Concomitant]
  5. ASPIRIN [Concomitant]
  6. TEGRETOL [Concomitant]
  7. CHLORPROMAZINE HCL [Concomitant]
  8. NELBON (NITRAZEPAM) [Concomitant]

REACTIONS (5)
  - BENIGN PROSTATIC HYPERPLASIA [None]
  - CARDIO-RESPIRATORY ARREST [None]
  - GENERAL PHYSICAL HEALTH DETERIORATION [None]
  - NEUROGENIC BLADDER [None]
  - PORIOMANIA [None]
